FAERS Safety Report 17942264 (Version 1)
Quarter: 2020Q2

REPORT INFORMATION
  Report Type: Spontaneous
  Country: CA (occurrence: CA)
  Receive Date: 20200625
  Receipt Date: 20200625
  Transmission Date: 20200714
  Serious: Yes (Death, Other)
  Sender: FDA-Public Use
  Company Number: CA-BAXTER-2020BAX012927

PATIENT
  Age: 73 Year
  Sex: Female
  Weight: 50 kg

DRUGS (9)
  1. PROCYTOX (CYCLOPHOSPHAMIDE) 2000MG/VIAL [Suspect]
     Active Substance: CYCLOPHOSPHAMIDE
     Dosage: DOSAGE FORM: NOT SPECIFIED.
     Route: 042
  2. PROCYTOX (CYCLOPHOSPHAMIDE) 2000MG/VIAL [Suspect]
     Active Substance: CYCLOPHOSPHAMIDE
     Indication: LYMPHOMA
     Dosage: DOSAGE FORM: NOT SPECIFIED.
     Route: 042
  3. PROCYTOX (CYCLOPHOSPHAMIDE) 2000MG/VIAL [Suspect]
     Active Substance: CYCLOPHOSPHAMIDE
     Dosage: DOSAGE FORM: NOT SPECIFIED.
     Route: 042
  4. FLUDARA [Suspect]
     Active Substance: FLUDARABINE PHOSPHATE
     Indication: LYMPHOMA
     Dosage: DOSAGE FORM: NOT SPECIFIED.
     Route: 042
  5. FLUDARA [Suspect]
     Active Substance: FLUDARABINE PHOSPHATE
     Dosage: DOSAGE FORM: NOT SPECIFIED.
     Route: 042
  6. ALLOPURINOL. [Suspect]
     Active Substance: ALLOPURINOL
     Indication: PRODUCT USED FOR UNKNOWN INDICATION
     Dosage: DOSAGE FORM: TABLETS.
     Route: 065
  7. NEUPOGEN [Suspect]
     Active Substance: FILGRASTIM
     Indication: PRODUCT USED FOR UNKNOWN INDICATION
     Dosage: DOSAGE FORM: SOLUTION INTRAVENOUS.
     Route: 042
  8. FLUDARA [Suspect]
     Active Substance: FLUDARABINE PHOSPHATE
     Dosage: DOSAGE FORM: NOT SPECIFIED.
     Route: 042
  9. IMODIUM [Suspect]
     Active Substance: LOPERAMIDE HYDROCHLORIDE
     Indication: LYMPHOMA
     Dosage: DOSAGE FORM: NOT SPECIFIED.
     Route: 065

REACTIONS (5)
  - Stevens-Johnson syndrome [Fatal]
  - Feeling cold [Fatal]
  - Pneumocystis jirovecii pneumonia [Fatal]
  - Malignant neoplasm progression [Fatal]
  - Pancytopenia [Fatal]
